FAERS Safety Report 8047980-3 (Version None)
Quarter: 2012Q1

REPORT INFORMATION
  Report Type: 
  Country: None (occurrence: None)
  Receive Date: 20120116
  Receipt Date: 20120103
  Transmission Date: 20120608
  Serious: Yes (Death, Hospitalization)
  Sender: FDA-Public Use
  Company Number: US-ABBOTT-12P-163-0889240-00

PATIENT
  Sex: Male

DRUGS (7)
  1. BETA BLOCKERS [Concomitant]
     Indication: PRODUCT USED FOR UNKNOWN INDICATION
  2. SIMVASTATIN [Concomitant]
     Indication: ARTERIOSCLEROSIS
     Route: 048
     Dates: start: 20081125, end: 20100507
  3. NIASPAN [Suspect]
     Indication: DYSLIPIDAEMIA
  4. ASPIRIN [Concomitant]
     Indication: PRODUCT USED FOR UNKNOWN INDICATION
  5. ACE INHIBITORS [Concomitant]
     Indication: PRODUCT USED FOR UNKNOWN INDICATION
  6. NIASPAN [Suspect]
     Indication: ARTERIOSCLEROSIS
     Route: 048
     Dates: start: 20081125, end: 20100507
  7. SIMVASTATIN [Concomitant]
     Indication: DYSLIPIDAEMIA

REACTIONS (2)
  - CEREBROVASCULAR ACCIDENT [None]
  - DEPRESSED LEVEL OF CONSCIOUSNESS [None]
